FAERS Safety Report 4488961-6 (Version None)
Quarter: 2004Q4

REPORT INFORMATION
  Report Type: 
  Country: None (occurrence: None)
  Receive Date: 20041029
  Receipt Date: 20040729
  Transmission Date: 20050328
  Serious: No
  Sender: FDA-Public Use
  Company Number: 200412867FR

PATIENT
  Age: 35 Year
  Sex: Male

DRUGS (2)
  1. KETEK [Suspect]
     Indication: TRACHEITIS
     Route: 048
     Dates: start: 20040413, end: 20040417
  2. XYZALL                                  /AUT/ [Concomitant]
     Indication: RHINITIS ALLERGIC
     Route: 048
     Dates: start: 20040413

REACTIONS (2)
  - ASTHENIA [None]
  - TENDON INJURY [None]
